FAERS Safety Report 9478502 (Version 14)
Quarter: 2016Q1

REPORT INFORMATION
  Report Type: Spontaneous
  Country: CA (occurrence: CA)
  Receive Date: 20130827
  Receipt Date: 20160124
  Transmission Date: 20160526
  Serious: Yes (Hospitalization, Other)
  Sender: FDA-Public Use
  Company Number: CA-ROCHE-1265363

PATIENT
  Age: 57 Year
  Sex: Female

DRUGS (25)
  1. XOLAIR [Suspect]
     Active Substance: OMALIZUMAB
     Route: 058
     Dates: start: 20130502
  2. XOLAIR [Suspect]
     Active Substance: OMALIZUMAB
     Route: 058
  3. XOLAIR [Suspect]
     Active Substance: OMALIZUMAB
     Route: 058
     Dates: start: 20151023
  4. ADVAIR HFA [Concomitant]
     Active Substance: FLUTICASONE PROPIONATE\SALMETEROL XINAFOATE
  5. ALVESCO [Concomitant]
     Active Substance: CICLESONIDE
  6. XOLAIR [Suspect]
     Active Substance: OMALIZUMAB
     Indication: ASTHMA
     Route: 058
     Dates: start: 20121018
  7. XOLAIR [Suspect]
     Active Substance: OMALIZUMAB
     Route: 058
     Dates: start: 20130530
  8. XOLAIR [Suspect]
     Active Substance: OMALIZUMAB
     Route: 058
     Dates: start: 20140206
  9. XOLAIR [Suspect]
     Active Substance: OMALIZUMAB
     Route: 058
     Dates: start: 20150828
  10. SIMVASTATIN. [Concomitant]
     Active Substance: SIMVASTATIN
  11. SPIRIVA [Concomitant]
     Active Substance: TIOTROPIUM BROMIDE MONOHYDRATE
  12. VENTOLIN [Concomitant]
     Active Substance: ALBUTEROL SULFATE
  13. ZENHALE [Concomitant]
     Active Substance: FORMOTEROL FUMARATE\MOMETASONE FUROATE
  14. XOLAIR [Suspect]
     Active Substance: OMALIZUMAB
     Route: 058
     Dates: start: 20131017
  15. XOLAIR [Suspect]
     Active Substance: OMALIZUMAB
     Route: 058
     Dates: start: 20140109
  16. SINGULAIR [Concomitant]
     Active Substance: MONTELUKAST SODIUM
  17. XOLAIR [Suspect]
     Active Substance: OMALIZUMAB
     Route: 058
     Dates: start: 20130919
  18. XOLAIR [Suspect]
     Active Substance: OMALIZUMAB
     Route: 058
     Dates: start: 20131114
  19. PREDNISONE. [Concomitant]
     Active Substance: PREDNISONE
  20. ZADITEN [Concomitant]
     Active Substance: KETOTIFEN FUMARATE
  21. BRICANYL [Concomitant]
     Active Substance: TERBUTALINE SULFATE
  22. ATROVENT [Concomitant]
     Active Substance: IPRATROPIUM BROMIDE
  23. XOLAIR [Suspect]
     Active Substance: OMALIZUMAB
     Route: 058
     Dates: start: 20130725
  24. XOLAIR [Suspect]
     Active Substance: OMALIZUMAB
     Route: 058
     Dates: start: 20130219
  25. DAXAS [Concomitant]
     Active Substance: ROFLUMILAST

REACTIONS (26)
  - Blood pressure systolic increased [Unknown]
  - Condition aggravated [Unknown]
  - Wheezing [Not Recovered/Not Resolved]
  - Hypoventilation [Not Recovered/Not Resolved]
  - Malaise [Unknown]
  - Osteoarthritis [Unknown]
  - Lung infection [Recovering/Resolving]
  - Lower respiratory tract infection [Unknown]
  - Speech disorder [Unknown]
  - Headache [Recovered/Resolved]
  - Respiratory tract infection [Unknown]
  - Localised infection [Unknown]
  - Viral infection [Not Recovered/Not Resolved]
  - Pharyngitis [Unknown]
  - Obstructive airways disorder [Not Recovered/Not Resolved]
  - Dyspnoea exertional [Unknown]
  - Tooth abscess [Unknown]
  - Nausea [Recovered/Resolved]
  - Influenza [Unknown]
  - Breath sounds abnormal [Unknown]
  - Arthritis [Unknown]
  - Infection [Unknown]
  - Respiratory rate increased [Unknown]
  - Asthma [Recovered/Resolved]
  - Oropharyngeal pain [Unknown]
  - Drug hypersensitivity [Unknown]

NARRATIVE: CASE EVENT DATE: 20121025
